FAERS Safety Report 4638108-8 (Version None)
Quarter: 2005Q2

REPORT INFORMATION
  Report Type: 
  Country: None (occurrence: None)
  Receive Date: 20050415
  Receipt Date: 20050407
  Transmission Date: 20051028
  Serious: Yes (Hospitalization)
  Sender: FDA-Public Use
  Company Number: ZICO001196

PATIENT
  Age: 46 Year
  Sex: Female
  Weight: 63.5036 kg

DRUGS (1)
  1. PRIALT [Suspect]
     Dosage: INTRATHECAL
     Route: 037
     Dates: start: 20050308, end: 20050309

REACTIONS (10)
  - CHEST WALL PAIN [None]
  - DYSPNOEA [None]
  - FLANK PAIN [None]
  - HYPOAESTHESIA [None]
  - INSOMNIA [None]
  - MOVEMENT DISORDER [None]
  - MUSCLE SPASMS [None]
  - PANIC ATTACK [None]
  - PARAESTHESIA [None]
  - TREMOR [None]
